FAERS Safety Report 6091563-1 (Version None)
Quarter: 2009Q1

REPORT INFORMATION
  Report Type: 
  Country: None (occurrence: None)
  Receive Date: 20090225
  Receipt Date: 20080108
  Transmission Date: 20090719
  Serious: No
  Sender: FDA-Public Use
  Company Number: A0702796A

PATIENT

DRUGS (1)
  1. VALTREX [Suspect]
     Dosage: 1G UNKNOWN
     Route: 048
     Dates: start: 20080106

REACTIONS (3)
  - DIZZINESS [None]
  - HEADACHE [None]
  - ORAL HERPES [None]
